FAERS Safety Report 19375990 (Version 1)
Quarter: 2021Q2

REPORT INFORMATION
  Report Type: Spontaneous
  Country: US (occurrence: US)
  Receive Date: 20210604
  Receipt Date: 20210604
  Transmission Date: 20210717
  Serious: Yes (Hospitalization, Other)
  Sender: FDA-Public Use
  Company Number: US-HIKMA PHARMACEUTICALS USA INC.-US-H14001-21-02607

PATIENT
  Sex: Female

DRUGS (2)
  1. AZATHIOPRINE. [Suspect]
     Active Substance: AZATHIOPRINE
     Indication: IMMUNOSUPPRESSION
     Dosage: UNKNOWN
     Route: 065
  2. TACROLIMUS. [Suspect]
     Active Substance: TACROLIMUS
     Indication: IMMUNOSUPPRESSION
     Dosage: UNKNOWN
     Route: 065

REACTIONS (8)
  - COVID-19 [Recovered/Resolved]
  - Cerebrovascular accident [Unknown]
  - Diabetes mellitus [Unknown]
  - Asthma [Unknown]
  - Pancreatitis [Unknown]
  - Reflux nephropathy [Unknown]
  - Migraine [Unknown]
  - Hyponatraemia [Unknown]
